FAERS Safety Report 18924984 (Version 1)
Quarter: 2021Q1

REPORT INFORMATION
  Report Type: Report from Study
  Country: US (occurrence: US)
  Receive Date: 20210222
  Receipt Date: 20210222
  Transmission Date: 20210420
  Serious: Yes (Hospitalization)
  Sender: FDA-Public Use
  Company Number: US-BAUSCH-BL-2021-005348

PATIENT
  Age: 24 Year
  Sex: Female

DRUGS (1)
  1. ELIDEL [Suspect]
     Active Substance: PIMECROLIMUS
     Indication: ECZEMA
     Dosage: LAST REPORTED USE ON 18/JAN/2017 (30GM). TOTAL 510GM
     Route: 065
     Dates: start: 20101208, end: 20170118

REACTIONS (2)
  - Skin cancer [Unknown]
  - Maternal exposure during pregnancy [Unknown]

NARRATIVE: CASE EVENT DATE: 20200721
